FAERS Safety Report 5485043-1 (Version None)
Quarter: 2007Q4

REPORT INFORMATION
  Report Type: 
  Country: None (occurrence: None)
  Receive Date: 20071015
  Receipt Date: 20071008
  Transmission Date: 20080405
  Serious: Yes (Other)
  Sender: FDA-Public Use
  Company Number: PHBS2007US16810

PATIENT
  Age: 81 Year
  Sex: Female

DRUGS (1)
  1. ZOLEDRONIC ACID [Suspect]
     Route: 065

REACTIONS (3)
  - BIOPSY BONE ABNORMAL [None]
  - OSTEONECROSIS [None]
  - POSITRON EMISSION TOMOGRAM ABNORMAL [None]
